FAERS Safety Report 5164389-0 (Version None)
Quarter: 2006Q4

REPORT INFORMATION
  Report Type: 
  Country: None (occurrence: None)
  Receive Date: 20061129
  Receipt Date: 20061129
  Transmission Date: 20070319
  Serious: Yes (Hospitalization)
  Sender: FDA-Public Use
  Company Number: None

PATIENT
  Sex: Male
  Weight: 120.2 kg

DRUGS (17)
  1. ZYVOX [Suspect]
     Indication: STREPTOCOCCAL INFECTION
     Dosage: 600MG EVERY 12 HOURS IV
     Route: 042
     Dates: start: 20061110, end: 20061113
  2. LOTENSIN HCT [Concomitant]
  3. GLUCOVANCE [Concomitant]
  4. PROTONIX [Concomitant]
  5. KLONOPIN [Concomitant]
  6. ELAVIL [Concomitant]
  7. NEURONTIN [Concomitant]
  8. VICODIN [Concomitant]
  9. GLUCOTROL XL [Concomitant]
  10. FLEXERIL [Concomitant]
  11. THIAMINE HCL [Concomitant]
  12. BACITRACIN [Concomitant]
  13. DOXEPIN HCL [Concomitant]
  14. TYLENOL [Concomitant]
  15. HYDROCODONE W/APAP [Concomitant]
  16. SILVADENE [Concomitant]
  17. TRIAMCINOLONE [Concomitant]

REACTIONS (1)
  - ANXIETY [None]
